FAERS Safety Report 4401293-7 (Version None)
Quarter: 2004Q3

REPORT INFORMATION
  Report Type: 
  Country: None (occurrence: None)
  Receive Date: 20040907
  Receipt Date: 20040213
  Transmission Date: 20050211
  Serious: No
  Sender: FDA-Public Use
  Company Number: US-BRISTOL-MYERS SQUIBB COMPANY-12508776

PATIENT
  Age: 27 Year
  Sex: Female
  Weight: 57 kg

DRUGS (1)
  1. COUMADIN [Suspect]
     Indication: DEEP VEIN THROMBOSIS
     Dosage: STARTED ^ABOUT^ 15-JAN-2004; ALTERNATES WITH 4MG + 5MG DAILY.
     Route: 048
     Dates: start: 20040115

REACTIONS (2)
  - BLUE TOE SYNDROME [None]
  - PAIN IN EXTREMITY [None]
